FAERS Safety Report 8758144 (Version 2)
Quarter: 2013Q4

REPORT INFORMATION
  Report Type: Spontaneous
  Country: US (occurrence: US)
  Receive Date: 20120828
  Receipt Date: 20131101
  Transmission Date: 20140711
  Serious: No
  Sender: FDA-Public Use
  Company Number: US-009507513-1208USA009480

PATIENT
  Sex: Male

DRUGS (1)
  1. AFRIN SPRAY [Suspect]
     Indication: PRODUCT USED FOR UNKNOWN INDICATION
     Dosage: UNK, Q2H
     Route: 045

REACTIONS (4)
  - Drug dependence [Unknown]
  - Overdose [Unknown]
  - Nasal congestion [Unknown]
  - Inappropriate schedule of drug administration [Unknown]
